FAERS Safety Report 15183207 (Version 1)
Quarter: 2018Q3

REPORT INFORMATION
  Report Type: Spontaneous
  Country: US (occurrence: US)
  Receive Date: 20180723
  Receipt Date: 20180723
  Transmission Date: 20181010
  Serious: No
  Sender: FDA-Public Use
  Company Number: US-009507513-1807USA002922

PATIENT
  Age: 17 Year
  Sex: Female
  Weight: 115.19 kg

DRUGS (1)
  1. NEXPLANON [Suspect]
     Active Substance: ETONOGESTREL
     Dosage: 1 IMPLANT, 3 YEARS
     Route: 059
     Dates: start: 20160902, end: 20180705

REACTIONS (2)
  - No adverse event [Unknown]
  - Device breakage [Recovered/Resolved]
